FAERS Safety Report 10043320 (Version 2)
Quarter: 2014Q4

REPORT INFORMATION
  Report Type: Spontaneous
  Country: IT (occurrence: IT)
  Receive Date: 20140328
  Receipt Date: 20141021
  Transmission Date: 20150528
  Serious: Yes (Hospitalization)
  Sender: FDA-Public Use
  Company Number: IT-ACCORD-022751

PATIENT
  Age: 54 Year
  Sex: Male

DRUGS (4)
  1. ACCORD^S FLUOROURACIL [Suspect]
     Active Substance: FLUOROURACIL
     Indication: SMALL INTESTINE CARCINOMA METASTATIC
     Dosage: 720 MG BOLUS, 2160 MG CONTINUOUS INFUSION.
     Route: 042
     Dates: start: 20140111
  2. EMEND [Concomitant]
     Active Substance: APREPITANT
     Indication: SMALL INTESTINE CARCINOMA METASTATIC
     Dosage: (MERCK SHARP + DOHME LIMITED) (A04AD12)
     Route: 048
     Dates: start: 20140111, end: 20140113
  3. OXALIPLATIN SUN [Suspect]
     Active Substance: OXALIPLATIN
     Indication: SMALL INTESTINE CARCINOMA METASTATIC
     Dosage: THERAPY DURATION: FROM 11/01/2014 TO 11/01/2014
     Route: 042
     Dates: start: 20140111
  4. CALCIUM LEVOFOLINATE [Concomitant]
     Active Substance: LEVOLEUCOVORIN CALCIUM
     Indication: SMALL INTESTINE CARCINOMA METASTATIC
     Route: 042
     Dates: start: 20140111, end: 20140112

REACTIONS (4)
  - Ileus paralytic [Recovered/Resolved]
  - Constipation [Recovered/Resolved]
  - Vomiting [Recovered/Resolved]
  - Febrile neutropenia [Recovered/Resolved]

NARRATIVE: CASE EVENT DATE: 20140115
